FAERS Safety Report 21248190 (Version 3)
Quarter: 2022Q3

REPORT INFORMATION
  Report Type: Spontaneous
  Country: CA (occurrence: CA)
  Receive Date: 20220824
  Receipt Date: 20220919
  Transmission Date: 20221027
  Serious: Yes (Other)
  Sender: FDA-Public Use
  Company Number: CA-PFIZER INC-202200519331

PATIENT
  Age: 67 Year
  Sex: Female
  Weight: 42 kg

DRUGS (8)
  1. RUXIENCE [Suspect]
     Active Substance: RITUXIMAB-PVVR
     Indication: Rheumatoid arthritis
     Dosage: 500 MG (DAY 1 AND 15)
     Route: 042
     Dates: start: 20220817, end: 20220817
  2. RUXIENCE [Suspect]
     Active Substance: RITUXIMAB-PVVR
     Dosage: 500 MG (DAY 1 AND 15)
     Route: 042
     Dates: start: 20220817, end: 20220831
  3. RUXIENCE [Suspect]
     Active Substance: RITUXIMAB-PVVR
     Dosage: 500 MG (DAY 1 AND 15)
     Route: 042
     Dates: start: 20220831
  4. ADALAT [Concomitant]
     Active Substance: NIFEDIPINE
     Dosage: 1 DF UNKNOWN DOSE
     Route: 065
     Dates: start: 20220321
  5. CELEBREX [Concomitant]
     Active Substance: CELECOXIB
     Dosage: UNK
  6. LYRICA [Concomitant]
     Active Substance: PREGABALIN
     Dosage: UNK
  7. LEFLUNOMIDE [Concomitant]
     Active Substance: LEFLUNOMIDE
     Dosage: 1 DF UNKNOWN DOSE
     Route: 065
     Dates: start: 202203
  8. PIROXICAM [Concomitant]
     Active Substance: PIROXICAM
     Dosage: UNK

REACTIONS (19)
  - Cataract [Unknown]
  - Off label use [Unknown]
  - Off label use [Unknown]
  - Intentional product use issue [Unknown]
  - Headache [Not Recovered/Not Resolved]
  - Fatigue [Not Recovered/Not Resolved]
  - Constipation [Unknown]
  - Arthralgia [Unknown]
  - Feeling abnormal [Unknown]
  - Anxiety [Unknown]
  - Depression [Unknown]
  - Muscle spasms [Unknown]
  - Toothache [Unknown]
  - Pain [Unknown]
  - Muscle twitching [Unknown]
  - Myalgia [Unknown]
  - Nausea [Unknown]
  - Inflammation [Not Recovered/Not Resolved]
  - Energy increased [Unknown]

NARRATIVE: CASE EVENT DATE: 20220101
